FAERS Safety Report 4304007-4 (Version None)
Quarter: 2004Q1

REPORT INFORMATION
  Report Type: 
  Country: None (occurrence: None)
  Receive Date: 20040223
  Receipt Date: 20040121
  Transmission Date: 20041129
  Serious: No
  Sender: FDA-Public Use
  Company Number: PHEH2003US10526

PATIENT
  Age: 76 Year
  Sex: Male
  Weight: 93 kg

DRUGS (13)
  1. ZELNORM [Suspect]
     Indication: GASTROOESOPHAGEAL REFLUX DISEASE
     Dosage: 6 MG, BID, ORAL
     Route: 048
     Dates: start: 20031029
  2. EXELON [Concomitant]
  3. ATACAND [Concomitant]
  4. PAXIL [Concomitant]
  5. ATENOLOL [Concomitant]
  6. SIMVASTATIN [Concomitant]
  7. ASPIRIN [Concomitant]
  8. XANAX [Concomitant]
  9. COLACE [Concomitant]
  10. HYDROCHLOROTHIAZIDE [Concomitant]
  11. NEXIUM [Concomitant]
  12. AVAPRO [Concomitant]
  13. MULTIVITAMINS (PANTHENOL, RETINOL) [Concomitant]

REACTIONS (1)
  - UNEXPECTED THERAPEUTIC DRUG EFFECT [None]
